FAERS Safety Report 18846233 (Version 1)
Quarter: 2021Q1

REPORT INFORMATION
  Report Type: Report from Study
  Country: US (occurrence: US)
  Receive Date: 20210203
  Receipt Date: 20210203
  Transmission Date: 20210419
  Serious: No
  Sender: FDA-Public Use
  Company Number: US-EXELIXIS-CABO-20031076

PATIENT
  Age: 58 Year
  Sex: Female

DRUGS (13)
  1. ELIQUIS [Concomitant]
     Active Substance: APIXABAN
  2. PROTONIX [Concomitant]
     Active Substance: PANTOPRAZOLE SODIUM
  3. ZOFRAN [Concomitant]
     Active Substance: ONDANSETRON HYDROCHLORIDE
  4. BACTROBAN [Concomitant]
     Active Substance: MUPIROCIN\MUPIROCIN CALCIUM
  5. FLEXERIL [Concomitant]
     Active Substance: CYCLOBENZAPRINE HYDROCHLORIDE
  6. MAXALT?MLT [Concomitant]
     Active Substance: RIZATRIPTAN BENZOATE
  7. PREDNISONE. [Concomitant]
     Active Substance: PREDNISONE
  8. CABOMETYX [Suspect]
     Active Substance: CABOZANTINIB S-MALATE
     Dosage: 40 MG, QD
     Route: 048
  9. CALCIUM +D [Concomitant]
     Active Substance: CALCIUM\VITAMIN D
  10. OXYCODONE/APAP [Concomitant]
     Active Substance: ACETAMINOPHEN\OXYCODONE HYDROCHLORIDE
  11. EPIPEN [Concomitant]
     Active Substance: EPINEPHRINE
  12. VITAMIN B12 [Concomitant]
     Active Substance: CYANOCOBALAMIN
  13. CABOMETYX [Suspect]
     Active Substance: CABOZANTINIB S-MALATE
     Indication: RENAL CANCER
     Dosage: 60 MG, QD
     Route: 048
     Dates: start: 20200225

REACTIONS (2)
  - Palmar-plantar erythrodysaesthesia syndrome [Unknown]
  - Osteoporotic fracture [Recovered/Resolved]

NARRATIVE: CASE EVENT DATE: 20200429
